FAERS Safety Report 21396537 (Version 14)
Quarter: 2025Q2

REPORT INFORMATION
  Report Type: Report from Study
  Country: GB (occurrence: GB)
  Receive Date: 20220930
  Receipt Date: 20250618
  Transmission Date: 20250717
  Serious: Yes (Life-Threatening, Hospitalization, Other)
  Sender: NOVARTIS
  Company Number: GB-NOVARTISPH-PHHY2019GB101628

PATIENT
  Age: 30 Year
  Sex: Male

DRUGS (8)
  1. COSENTYX [Suspect]
     Active Substance: SECUKINUMAB
     Indication: Psoriatic arthropathy
     Dosage: 300 MG, QW (ON WEEKS 0, 1, 2, 3 AND 4 FOLLOWED BY ONCE MONTHLY)
     Route: 058
     Dates: start: 20190322
  2. COSENTYX [Suspect]
     Active Substance: SECUKINUMAB
     Route: 058
  3. COSENTYX [Suspect]
     Active Substance: SECUKINUMAB
     Dosage: 300 MG, QMO
     Route: 058
     Dates: start: 2019
  4. COSENTYX [Suspect]
     Active Substance: SECUKINUMAB
     Route: 065
     Dates: start: 202302
  5. COSENTYX [Suspect]
     Active Substance: SECUKINUMAB
     Dosage: 300 MG, QMO (MAINTENANCE)
     Route: 058
  6. PREGABALIN [Concomitant]
     Active Substance: PREGABALIN
     Indication: Product used for unknown indication
     Route: 065
  7. FLUOXETINE [Concomitant]
     Active Substance: FLUOXETINE HYDROCHLORIDE
     Indication: Product used for unknown indication
     Route: 065
  8. PREDNISONE [Concomitant]
     Active Substance: PREDNISONE
     Indication: Product used for unknown indication
     Route: 065

REACTIONS (27)
  - Suicide attempt [Recovering/Resolving]
  - Mental disorder [Unknown]
  - Abdominal pain [Not Recovered/Not Resolved]
  - Psoriatic arthropathy [Unknown]
  - Pain [Unknown]
  - Joint stiffness [Unknown]
  - Arthralgia [Unknown]
  - Bipolar disorder [Unknown]
  - Self-destructive behaviour [Unknown]
  - Suicidal ideation [Unknown]
  - Major depression [Unknown]
  - Suicidal behaviour [Unknown]
  - Anxiety [Unknown]
  - Device malfunction [Not Recovered/Not Resolved]
  - Inappropriate schedule of product administration [Unknown]
  - Liquid product physical issue [Unknown]
  - Overdose [Unknown]
  - Injection site pain [Unknown]
  - Fear of injection [Unknown]
  - Skin lesion [Unknown]
  - Joint swelling [Unknown]
  - Dry skin [Unknown]
  - Scab [Unknown]
  - Psoriasis [Unknown]
  - Peripheral swelling [Unknown]
  - Skin haemorrhage [Unknown]
  - Pain of skin [Unknown]

NARRATIVE: CASE EVENT DATE: 20190501
